FAERS Safety Report 13250660 (Version 1)
Quarter: 2017Q1

REPORT INFORMATION
  Report Type: Report from Study
  Country: JP (occurrence: JP)
  Receive Date: 20170219
  Receipt Date: 20170219
  Transmission Date: 20170428
  Serious: Yes (Death, Other)
  Sender: FDA-Public Use
  Company Number: JP-ALEXION-A201604103

PATIENT

DRUGS (1)
  1. SOLIRIS [Suspect]
     Active Substance: ECULIZUMAB
     Indication: PAROXYSMAL NOCTURNAL HAEMOGLOBINURIA
     Dosage: 900 MG, DAILY
     Route: 042
     Dates: start: 20110620, end: 20170105

REACTIONS (5)
  - Myelodysplastic syndrome [Fatal]
  - Cardiac failure [Fatal]
  - Condition aggravated [Fatal]
  - Haemolysis [Unknown]
  - Inappropriate schedule of drug administration [Recovering/Resolving]
